FAERS Safety Report 8290757-4 (Version None)
Quarter: 2012Q2

REPORT INFORMATION
  Report Type: 
  Country: None (occurrence: None)
  Receive Date: 20120417
  Receipt Date: 20120406
  Transmission Date: 20120825
  Serious: Yes (Death)
  Sender: FDA-Public Use
  Company Number: US-ACTELION-A-NJ2012-63882

PATIENT

DRUGS (10)
  1. POTASSIUM CHLORIDE [Concomitant]
  2. ASPIRIN [Concomitant]
  3. PLAVIX [Concomitant]
  4. LISINOPRIL [Concomitant]
  5. ZOCOR [Concomitant]
  6. NITRODERM [Concomitant]
  7. METOPROLOL TARTRATE [Concomitant]
  8. INSULIN [Concomitant]
  9. TRACLEER [Suspect]
     Indication: PULMONARY ARTERIAL HYPERTENSION
     Dosage: UNK
     Route: 048
     Dates: start: 20110623, end: 20120406
  10. LASIX [Concomitant]

REACTIONS (1)
  - DEATH [None]
